FAERS Safety Report 4745991-4 (Version None)
Quarter: 2005Q3

REPORT INFORMATION
  Report Type: 
  Country: None (occurrence: None)
  Receive Date: 20050816
  Receipt Date: 20050309
  Transmission Date: 20060218
  Serious: Yes (Hospitalization, Disabling)
  Sender: FDA-Public Use
  Company Number: US-MERCK-0503USA02006

PATIENT
  Age: 86 Year
  Sex: Male
  Weight: 73 kg

DRUGS (13)
  1. VIOXX [Suspect]
     Indication: OSTEOARTHRITIS
     Route: 048
     Dates: start: 20030911, end: 20040708
  2. VIOXX [Suspect]
     Indication: ARTHRALGIA
     Route: 048
     Dates: start: 20030911, end: 20040708
  3. ULTRACET [Concomitant]
     Indication: PAIN
     Route: 065
  4. ZOLOFT [Concomitant]
     Indication: DEPRESSION
     Route: 065
     Dates: start: 19900101
  5. FOSAMAX [Concomitant]
     Indication: OSTEOARTHRITIS
     Route: 065
  6. FLEXERIL [Concomitant]
     Indication: MUSCLE SPASMS
     Route: 065
  7. PREDNISOLONE [Concomitant]
     Indication: ARTHRITIS
     Route: 065
  8. GLIPIZIDE [Concomitant]
     Indication: DIABETES MELLITUS
     Route: 065
  9. ZOCOR [Concomitant]
     Indication: BLOOD CHOLESTEROL INCREASED
     Route: 065
  10. ZANTAC [Concomitant]
     Indication: ULCER
     Route: 065
  11. HYTRIN [Concomitant]
     Indication: BENIGN PROSTATIC HYPERPLASIA
     Route: 065
  12. ASPIRIN [Suspect]
     Indication: OSTEOARTHRITIS
     Route: 065
     Dates: start: 19850101
  13. ASPIRIN [Suspect]
     Indication: ANTICOAGULANT THERAPY
     Route: 065
     Dates: start: 19850101

REACTIONS (16)
  - ANAEMIA [None]
  - CEREBROVASCULAR ACCIDENT [None]
  - CHEST INJURY [None]
  - CONTUSION [None]
  - DRUG HYPERSENSITIVITY [None]
  - DRUG INTERACTION [None]
  - DYSLIPIDAEMIA [None]
  - FALL [None]
  - GASTRIC ULCER [None]
  - GASTROINTESTINAL ARTERIOVENOUS MALFORMATION [None]
  - HYPERTENSION [None]
  - HYPOKALAEMIA [None]
  - INTERTRIGO CANDIDA [None]
  - OSTEOARTHRITIS [None]
  - RENAL FAILURE ACUTE [None]
  - URINARY TRACT INFECTION [None]
